FAERS Safety Report 7721262-9 (Version None)
Quarter: 2011Q3

REPORT INFORMATION
  Report Type: 
  Country: None (occurrence: None)
  Receive Date: 20110831
  Receipt Date: 20110825
  Transmission Date: 20111222
  Serious: Yes (Hospitalization)
  Sender: FDA-Public Use
  Company Number: GB-TEVA-298418ISR

PATIENT
  Age: 86 Year
  Sex: Female

DRUGS (4)
  1. RAMIPRIL [Suspect]
     Indication: MYOCARDIAL ISCHAEMIA
     Dosage: 10 MILLIGRAM;
     Route: 048
     Dates: start: 20110802
  2. METOPROLOL TARTRATE [Suspect]
     Indication: MYOCARDIAL ISCHAEMIA
  3. METOPROLOL TARTRATE [Suspect]
     Indication: HYPERTENSION
     Dosage: 25 MILLIGRAM;
     Route: 048
     Dates: start: 20110802, end: 20110802
  4. RAMIPRIL [Suspect]
     Indication: HYPERTENSION

REACTIONS (1)
  - LARYNGEAL OEDEMA [None]
